FAERS Safety Report 19274211 (Version 2)
Quarter: 2021Q2

REPORT INFORMATION
  Report Type: Spontaneous
  Country: US (occurrence: US)
  Receive Date: 20210519
  Receipt Date: 20210630
  Transmission Date: 20210717
  Serious: Yes (Hospitalization, Other)
  Sender: FDA-Public Use
  Company Number: US-INDIVIOR US-INDV-129637-2021

PATIENT

DRUGS (6)
  1. BUPRENORPHINE TABLET [Suspect]
     Active Substance: BUPRENORPHINE
     Dosage: 8 MG TID
     Route: 065
  2. BUPRENORPHINE TABLET [Suspect]
     Active Substance: BUPRENORPHINE
     Dosage: 3 MILLIGRAM, QD (DAY 2)(1MG AM AND 2 MG PM)
     Route: 065
  3. BUPRENORPHINE TABLET [Suspect]
     Active Substance: BUPRENORPHINE
     Indication: DRUG USE DISORDER
     Dosage: 1 MILLIGRAM, QD (DAY 1)
     Route: 065
  4. BUPRENORPHINE TABLET [Suspect]
     Active Substance: BUPRENORPHINE
     Dosage: 8 MILLIGRAM, QD (DAY 3)
     Route: 065
  5. BUPRENORPHINE/NALOXONE [Suspect]
     Active Substance: BUPRENORPHINE\NALOXONE
     Indication: DRUG USE DISORDER
     Dosage: UNK
     Route: 065
  6. BUPRENORPHINE. [Suspect]
     Active Substance: BUPRENORPHINE
     Indication: DRUG USE DISORDER
     Dosage: UNK (TOOK BUPRENORPHINE DAY PRIOIR HOSPITALIZATION)
     Route: 065

REACTIONS (9)
  - Asthma [Unknown]
  - Drug withdrawal syndrome [Not Recovered/Not Resolved]
  - Osteomyelitis [Unknown]
  - Wrong technique in product usage process [Recovered/Resolved]
  - Headache [Unknown]
  - Off label use [Recovered/Resolved]
  - Nephrolithiasis [Unknown]
  - Drug abuse [Unknown]
  - Inappropriate schedule of product administration [Unknown]
